FAERS Safety Report 8957274 (Version 1)
Quarter: 2012Q4

REPORT INFORMATION
  Report Type: 
  Country: US (occurrence: US)
  Receive Date: 20121211
  Receipt Date: 20121211
  Transmission Date: 20130627
  Serious: No
  Sender: FDA-Public Use
  Company Number: US-PFIZER INC-2012311053

PATIENT
  Sex: Female

DRUGS (5)
  1. EFFEXOR XR [Suspect]
     Dosage: UNK
  2. EFFEXOR XR [Suspect]
     Dosage: UNK, 1x/day
  3. EFFEXOR XR [Suspect]
     Dosage: UNK, alternate day
  4. EFFEXOR XR [Suspect]
     Dosage: UNK, every 2 days
  5. EFFEXOR XR [Suspect]
     Dosage: UNK, every three days

REACTIONS (3)
  - Nausea [Unknown]
  - Pain [Unknown]
  - Myalgia [Unknown]
